FAERS Safety Report 22140190 (Version 1)
Quarter: 2023Q1

REPORT INFORMATION
  Report Type: Report from Study
  Country: US (occurrence: US)
  Receive Date: 20230327
  Receipt Date: 20230327
  Transmission Date: 20230418
  Serious: Yes (Other)
  Sender: FDA-Public Use
  Company Number: US-ABBVIE-4703329

PATIENT
  Sex: Male

DRUGS (1)
  1. IMBRUVICA [Suspect]
     Active Substance: IBRUTINIB
     Indication: Chronic lymphocytic leukaemia
     Route: 048
     Dates: start: 20200101

REACTIONS (6)
  - Cataract [Unknown]
  - Rheumatoid arthritis [Unknown]
  - Nephropathy [Unknown]
  - Cardiac disorder [Unknown]
  - Diabetes mellitus [Unknown]
  - Blood cholesterol increased [Unknown]
